FAERS Safety Report 16666213 (Version 2)
Quarter: 2019Q3

REPORT INFORMATION
  Report Type: Spontaneous
  Country: US (occurrence: US)
  Receive Date: 20190805
  Receipt Date: 20190806
  Transmission Date: 20191004
  Serious: Yes (Other)
  Sender: FDA-Public Use
  Company Number: US-ACCORD-095295

PATIENT
  Age: 42 Year
  Sex: Female
  Weight: 68.18 kg

DRUGS (22)
  1. LISINOPRIL. [Concomitant]
     Active Substance: LISINOPRIL
     Dates: start: 2011, end: 2016
  2. DEXAMETHASONE. [Concomitant]
     Active Substance: DEXAMETHASONE
     Dates: start: 2012, end: 2012
  3. AMLODIPINE [Concomitant]
     Active Substance: AMLODIPINE BESYLATE
  4. DOXYCYCLINE. [Concomitant]
     Active Substance: DOXYCYCLINE
     Dates: start: 2012, end: 2012
  5. PROCATEROL [Concomitant]
     Active Substance: PROCATEROL HYDROCHLORIDE
     Dates: start: 2011
  6. PARAPLATIN [Suspect]
     Active Substance: CARBOPLATIN
     Indication: BREAST CANCER
     Dosage: NUMBER OF CYCLES: 06
     Dates: start: 20120209, end: 20120524
  7. CETIRIZINE [Concomitant]
     Active Substance: CETIRIZINE HYDROCHLORIDE
     Dates: start: 2012
  8. GLICLAZIDE [Concomitant]
     Active Substance: GLICLAZIDE
     Dates: start: 2012
  9. MONTELUKAST [Concomitant]
     Active Substance: MONTELUKAST SODIUM
     Dates: start: 2011
  10. GOSERELIN [Concomitant]
     Active Substance: GOSERELIN
     Dates: start: 201209
  11. CICLESONIDE [Concomitant]
     Active Substance: CICLESONIDE
     Dates: start: 2011
  12. TRIPLE MIX (EQUAL PARTS) MAALOX, VISC, LIDOCAINE, BENADRYL [Concomitant]
     Dates: start: 2012, end: 2012
  13. TRASTUZUMAB. [Concomitant]
     Active Substance: TRASTUZUMAB
     Dates: start: 20120209, end: 201301
  14. ZANTAC 150 HEARTBURN PM [Concomitant]
     Dates: start: 2012
  15. PROCHLORPERAZINE. [Concomitant]
     Active Substance: PROCHLORPERAZINE
     Dates: start: 2012, end: 2012
  16. PROMETHAZINE [Concomitant]
     Active Substance: PROMETHAZINE HYDROCHLORIDE
     Dates: start: 2012
  17. MAGNESIUM HYDROXIDE. [Concomitant]
     Active Substance: MAGNESIUM HYDROXIDE
     Dates: start: 2012
  18. DOCETAXEL ACCORD [Suspect]
     Active Substance: DOCETAXEL
     Indication: BREAST CANCER
     Dates: start: 20120209, end: 20120524
  19. COLECALCIFEROL [Concomitant]
     Active Substance: CHOLECALCIFEROL
     Dates: start: 2012
  20. ONDANSETRON [Concomitant]
     Active Substance: ONDANSETRON
     Dates: start: 2012
  21. CIPROFLOXACIN. [Concomitant]
     Active Substance: CIPROFLOXACIN
     Dates: start: 2012, end: 2012
  22. TAMOXIFEN/TAMOXIFEN CITRATE [Concomitant]
     Dates: start: 2012

REACTIONS (1)
  - Alopecia [Not Recovered/Not Resolved]

NARRATIVE: CASE EVENT DATE: 201202
